FAERS Safety Report 9765416 (Version 1)
Quarter: 2013Q4

REPORT INFORMATION
  Report Type: Spontaneous
  Country: US (occurrence: US)
  Receive Date: 20131217
  Receipt Date: 20131217
  Transmission Date: 20140711
  Serious: No
  Sender: FDA-Public Use
  Company Number: US-GLAXOSMITHKLINE-A1007201A

PATIENT
  Age: 32 Year
  Sex: Female

DRUGS (1)
  1. VOTRIENT [Suspect]
     Indication: MALIGNANT URINARY TRACT NEOPLASM
     Dosage: 800MG PER DAY
     Route: 048

REACTIONS (9)
  - Hyperaesthesia [Unknown]
  - Arthropathy [Unknown]
  - Diarrhoea [Unknown]
  - Abdominal discomfort [Unknown]
  - Abdominal pain upper [Unknown]
  - Menstruation irregular [Unknown]
  - Amenorrhoea [Unknown]
  - Ear pruritus [Not Recovered/Not Resolved]
  - Hyperacusis [Not Recovered/Not Resolved]
